FAERS Safety Report 24066422 (Version 7)
Quarter: 2025Q2

REPORT INFORMATION
  Report Type: Spontaneous
  Country: CO (occurrence: CO)
  Receive Date: 20240709
  Receipt Date: 20250610
  Transmission Date: 20250717
  Serious: Yes (Hospitalization, Other)
  Sender: PFIZER
  Company Number: CO-PFIZER INC-PV202400089194

PATIENT
  Age: 89 Year
  Sex: Male

DRUGS (9)
  1. VYNDAMAX [Suspect]
     Active Substance: TAFAMIDIS
     Indication: Cardiac amyloidosis
     Dosage: 61 MG, DAILY
     Route: 048
     Dates: start: 20240222, end: 20240505
  2. CILOSTAZOL [Concomitant]
     Active Substance: CILOSTAZOL
  3. MEMANTINE [Concomitant]
     Active Substance: MEMANTINE
  4. INDACATEROL [Concomitant]
     Active Substance: INDACATEROL
  5. BETAMETHASONE [Concomitant]
     Active Substance: BETAMETHASONE
  6. IPRATROPIUM BROMIDE [Concomitant]
     Active Substance: IPRATROPIUM BROMIDE
  7. TRIMETAZIDINE [Concomitant]
     Active Substance: TRIMETAZIDINE
     Indication: Angina pectoris
     Dosage: 35 MG, 1X/DAY
  8. ASPIRIN [Concomitant]
     Active Substance: ASPIRIN
     Dosage: 100 MG, 1X/DAY
  9. FUROSEMIDE [Concomitant]
     Active Substance: FUROSEMIDE
     Indication: Diuretic therapy
     Dosage: 40 MG, 1X/DAY

REACTIONS (17)
  - Chronic obstructive pulmonary disease [Unknown]
  - Heart rate increased [Unknown]
  - Dyspnoea [Unknown]
  - Choking [Unknown]
  - Mobility decreased [Unknown]
  - Loss of personal independence in daily activities [Unknown]
  - Cardiac disorder [Unknown]
  - Fall [Unknown]
  - Pulmonary oedema [Unknown]
  - Swelling [Unknown]
  - Fluid retention [Unknown]
  - Oedema [Unknown]
  - Complication associated with device [Unknown]
  - Arrhythmia supraventricular [Unknown]
  - Abdominal discomfort [Recovering/Resolving]
  - Diarrhoea [Recovering/Resolving]
  - Eating disorder [Unknown]

NARRATIVE: CASE EVENT DATE: 20240705
